FAERS Safety Report 21487316 (Version 4)
Quarter: 2024Q1

REPORT INFORMATION
  Report Type: Report from Study
  Country: BR (occurrence: BR)
  Receive Date: 20221020
  Receipt Date: 20240226
  Transmission Date: 20240410
  Serious: Yes (Other)
  Sender: FDA-Public Use
  Company Number: BR-ABBVIE-4168184

PATIENT
  Sex: Male
  Weight: 95 kg

DRUGS (2)
  1. SKYRIZI [Suspect]
     Active Substance: RISANKIZUMAB-RZAA
     Indication: Psoriasis
     Dosage: FORM STRENGTH: 75 MILLIGRAM
     Route: 030
     Dates: start: 20211126
  2. SKYRIZI [Suspect]
     Active Substance: RISANKIZUMAB-RZAA
     Indication: Psoriasis
     Dosage: FORM STRENGTH: 75 MILLIGRAM
     Route: 030

REACTIONS (8)
  - Brain neoplasm malignant [Recovering/Resolving]
  - Insomnia [Unknown]
  - Psoriasis [Not Recovered/Not Resolved]
  - Incorrect route of product administration [Unknown]
  - Skin lesion [Unknown]
  - Epilepsy [Recovering/Resolving]
  - Skin fissures [Not Recovered/Not Resolved]
  - Skin haemorrhage [Not Recovered/Not Resolved]

NARRATIVE: CASE EVENT DATE: 20220101
